FAERS Safety Report 25446004 (Version 1)
Quarter: 2025Q2

REPORT INFORMATION
  Report Type: Spontaneous
  Country: FR (occurrence: FR)
  Receive Date: 20250617
  Receipt Date: 20250617
  Transmission Date: 20250717
  Serious: Yes (Hospitalization)
  Sender: FRESENIUS KABI
  Company Number: None

PATIENT
  Age: 48 Year
  Sex: Female
  Weight: 78 kg

DRUGS (2)
  1. TOCILIZUMAB [Suspect]
     Active Substance: TOCILIZUMAB
     Indication: Rheumatoid arthritis
     Dosage: 162 MG/ WEEK?FOA: 1FP
     Route: 058
     Dates: start: 20241210
  2. DULOXETINE [Concomitant]
     Active Substance: DULOXETINE
     Indication: Rheumatoid arthritis
     Dosage: INCREASING DOSES (30MG/D FOR 1 WEEK, THEN 60MG/D FOR 1 WEEK, 90MG/D FOR 1 WEEK, THEN 120 MG/D LONG-T
     Route: 048
     Dates: start: 20241215

REACTIONS (3)
  - Haemoptysis [Recovered/Resolved]
  - Pruritus [Recovered/Resolved]
  - Injection site reaction [Recovered/Resolved]

NARRATIVE: CASE EVENT DATE: 20250201
